FAERS Safety Report 13981841 (Version 7)
Quarter: 2020Q3

REPORT INFORMATION
  Report Type: Spontaneous
  Country: US (occurrence: US)
  Receive Date: 20170918
  Receipt Date: 20200819
  Transmission Date: 20201102
  Serious: Yes (Other)
  Sender: FDA-Public Use
  Company Number: US-PFIZER INC-2017401296

PATIENT
  Age: 74 Year
  Sex: Female

DRUGS (2)
  1. PREMPRO [Suspect]
     Active Substance: ESTROGENS, CONJUGATED\MEDROXYPROGESTERONE ACETATE
     Dosage: 1 DF, DAILY (ESTROGENS CONJUGATED?0.45MG/MEDROXYPROGESTERONE ACETATE?1.5 MG)
     Route: 048
  2. PREMPRO [Suspect]
     Active Substance: ESTROGENS, CONJUGATED\MEDROXYPROGESTERONE ACETATE
     Indication: MENOPAUSAL DISORDER
     Dosage: UNK, 1X/DAY

REACTIONS (6)
  - Nausea [Unknown]
  - Illness [Unknown]
  - Headache [Unknown]
  - Hot flush [Unknown]
  - Feeling abnormal [Unknown]
  - Drug dependence [Unknown]
